FAERS Safety Report 15877774 (Version 7)
Quarter: 2022Q1

REPORT INFORMATION
  Report Type: Other
  Country: CA (occurrence: None)
  Receive Date: 20190128
  Receipt Date: 20220117
  Transmission Date: 20220423
  Serious: Yes (Other)
  Sender: FDA-Public Use
  Company Number: CA-ROCHE-1769712

PATIENT
  Age: 77 Year
  Sex: Female
  Weight: 102.9 kg

DRUGS (17)
  1. ESBRIET [Suspect]
     Active Substance: PIRFENIDONE
     Indication: Idiopathic pulmonary fibrosis
     Route: 048
     Dates: start: 2018, end: 2019
  2. ESBRIET [Suspect]
     Active Substance: PIRFENIDONE
     Indication: Idiopathic pulmonary fibrosis
     Route: 048
     Dates: start: 20160530, end: 20160606
  3. ESBRIET [Suspect]
     Active Substance: PIRFENIDONE
     Route: 048
     Dates: start: 20160607, end: 20160614
  4. ESBRIET [Suspect]
     Active Substance: PIRFENIDONE
     Route: 048
     Dates: start: 20160615, end: 2018
  5. ESBRIET [Suspect]
     Active Substance: PIRFENIDONE
     Dosage: PHARMACY HAS BEEN DISPENSING 267 MG CAPSULES AS PER REPORT RECEIVED 18/MAR/2020
     Route: 048
     Dates: start: 20200318
  6. INDOMETHACIN [Suspect]
     Active Substance: INDOMETHACIN
     Indication: Product used for unknown indication
     Route: 065
     Dates: start: 201611
  7. SYNTHROID [Concomitant]
     Active Substance: LEVOTHYROXINE SODIUM
  8. TEMAZEPAM [Concomitant]
     Active Substance: TEMAZEPAM
  9. CEFUROXIME AXETIL [Concomitant]
     Active Substance: CEFUROXIME AXETIL
  10. DIABETA (CANADA) [Concomitant]
  11. ALLOPURINOL [Concomitant]
     Active Substance: ALLOPURINOL
  12. DILTIAZEM [Concomitant]
     Active Substance: DILTIAZEM
  13. GLICLAZIDE [Concomitant]
     Active Substance: GLICLAZIDE
  14. NEXIUM [Concomitant]
     Active Substance: ESOMEPRAZOLE MAGNESIUM
  15. OXAZEPAM [Concomitant]
     Active Substance: OXAZEPAM
  16. UNSPECIFIED INGREDIENT [Concomitant]
     Active Substance: UNSPECIFIED INGREDIENT
  17. VENTOLIN [Concomitant]
     Active Substance: ALBUTEROL SULFATE

REACTIONS (20)
  - Hypertension [Unknown]
  - Gout [Not Recovered/Not Resolved]
  - Dyspnoea [Recovered/Resolved]
  - Biliary colic [Unknown]
  - Blood glucose increased [Recovering/Resolving]
  - Abdominal discomfort [Unknown]
  - Rhinorrhoea [Not Recovered/Not Resolved]
  - Lacrimation increased [Not Recovered/Not Resolved]
  - Cystitis [Recovered/Resolved]
  - Sinusitis [Unknown]
  - Nausea [Not Recovered/Not Resolved]
  - Anaemia [Unknown]
  - Malaise [Not Recovered/Not Resolved]
  - Emotional disorder [Not Recovered/Not Resolved]
  - Hyperthermia [Recovered/Resolved]
  - Dizziness [Recovered/Resolved]
  - Abdominal pain upper [Not Recovered/Not Resolved]
  - Productive cough [Unknown]
  - Pyrexia [Unknown]
  - Abdominal pain upper [Unknown]

NARRATIVE: CASE EVENT DATE: 20161119
